FAERS Safety Report 4729982-5 (Version None)
Quarter: 2005Q3

REPORT INFORMATION
  Report Type: 
  Country: None (occurrence: None)
  Receive Date: 20050729
  Receipt Date: 20050729
  Transmission Date: 20060218
  Serious: No
  Sender: FDA-Public Use
  Company Number: None

PATIENT
  Age: 34 Year
  Sex: Male

DRUGS (1)
  1. CITALOPRAM 40MG FOREST [Suspect]
     Indication: DEPRESSION
     Dosage: 20MG Q AM
     Dates: start: 20050506, end: 20050628

REACTIONS (1)
  - SEXUAL DYSFUNCTION [None]
